FAERS Safety Report 13194027 (Version 1)
Quarter: 2017Q1

REPORT INFORMATION
  Report Type: Spontaneous
  Country: AU (occurrence: AU)
  Receive Date: 20170207
  Receipt Date: 20170207
  Transmission Date: 20170428
  Serious: Yes (Hospitalization)
  Sender: FDA-Public Use
  Company Number: AU-ELI_LILLY_AND_COMPANY-AU201702000783

PATIENT
  Sex: Male
  Weight: 75 kg

DRUGS (1)
  1. TERIPARATIDE [Suspect]
     Active Substance: TERIPARATIDE
     Indication: OSTEOPOROSIS
     Dosage: UNK, QD
     Route: 058
     Dates: start: 201609, end: 201612

REACTIONS (5)
  - Oropharyngeal pain [Unknown]
  - Ocular hyperaemia [Unknown]
  - Gastric disorder [Not Recovered/Not Resolved]
  - Feeding disorder [Unknown]
  - Weight decreased [Recovering/Resolving]
